FAERS Safety Report 7017879-X (Version None)
Quarter: 2010Q3

REPORT INFORMATION
  Report Type: 
  Country: None (occurrence: None)
  Receive Date: 20100928
  Receipt Date: 20100923
  Transmission Date: 20110219
  Serious: Yes (Hospitalization)
  Sender: FDA-Public Use
  Company Number: IT-BAYER-201040488GPV

PATIENT
  Age: 63 Year
  Sex: Male

DRUGS (2)
  1. ASPIRIN [Suspect]
     Indication: PRODUCT USED FOR UNKNOWN INDICATION
     Dosage: TOTAL DAILY DOSE: 500 MG
     Route: 048
     Dates: start: 20100913, end: 20100913
  2. ZYLORIC [Concomitant]
     Route: 048
     Dates: start: 20100831, end: 20100912

REACTIONS (2)
  - CHEST PAIN [None]
  - SWELLING FACE [None]
